FAERS Safety Report 9889802 (Version 2)
Quarter: 2014Q1

REPORT INFORMATION
  Report Type: Spontaneous
  Country: US (occurrence: US)
  Receive Date: 20140212
  Receipt Date: 20140212
  Transmission Date: 20141002
  Serious: Yes (Other)
  Sender: FDA-Public Use
  Company Number: US-ROCHE-1323434

PATIENT
  Age: 52 Year
  Sex: 0
  Weight: 90.8 kg

DRUGS (6)
  1. XOLAIR [Suspect]
     Indication: ASTHMA
     Route: 065
     Dates: end: 2014
  2. ADVAIR [Concomitant]
     Indication: ASTHMA
     Route: 055
  3. SINGULAIR [Concomitant]
     Indication: ASTHMA
     Route: 048
  4. ACIPHEX [Concomitant]
     Indication: ASTHMA
     Route: 048
  5. PULMICORT [Concomitant]
     Route: 055
  6. GENTAMICIN [Concomitant]
     Route: 055

REACTIONS (5)
  - Vertigo [Unknown]
  - Amnesia [Unknown]
  - Paraesthesia [Unknown]
  - Alopecia [Unknown]
  - Sensory disturbance [Unknown]
